FAERS Safety Report 20049263 (Version 2)
Quarter: 2022Q1

REPORT INFORMATION
  Report Type: Spontaneous
  Country: US (occurrence: US)
  Receive Date: 20211109
  Receipt Date: 20220201
  Transmission Date: 20220423
  Serious: No
  Sender: FDA-Public Use
  Company Number: US-PFIZER INC-202100935663

PATIENT
  Age: 61 Year
  Sex: Female

DRUGS (1)
  1. IBRANCE [Suspect]
     Active Substance: PALBOCICLIB
     Dosage: 125 MG
     Dates: start: 20210718

REACTIONS (11)
  - Product dose omission issue [Unknown]
  - Anxiety [Unknown]
  - Arthralgia [Unknown]
  - Neck pain [Unknown]
  - Mucosal inflammation [Unknown]
  - Onychoclasis [Unknown]
  - Vision blurred [Unknown]
  - Dry mouth [Unknown]
  - Stomatitis [Unknown]
  - Fatigue [Unknown]
  - Lacrimation increased [Unknown]

NARRATIVE: CASE EVENT DATE: 20210101
